FAERS Safety Report 8822052 (Version 1)
Quarter: 2012Q4

REPORT INFORMATION
  Report Type: 
  Country: GB (occurrence: GB)
  Receive Date: 20121003
  Receipt Date: 20121003
  Transmission Date: 20130627
  Serious: Yes (Hospitalization)
  Sender: FDA-Public Use
  Company Number: GB-BIOGENIDEC-2012BI041378

PATIENT
  Age: 42 Year
  Sex: Female

DRUGS (5)
  1. TYSABRI [Suspect]
     Indication: MULTIPLE SCLEROSIS
     Route: 042
     Dates: start: 20120712, end: 20120809
  2. BACLOFEN [Concomitant]
  3. CLONAZEPAM [Concomitant]
  4. FLUOXETINE [Concomitant]
  5. INSULIN [Concomitant]
     Indication: TYPE 1 DIABETES MELLITUS

REACTIONS (2)
  - Ketosis [Recovered/Resolved]
  - Diabetic ketoacidosis [Not Recovered/Not Resolved]
